FAERS Safety Report 23631569 (Version 1)
Quarter: 2024Q1

REPORT INFORMATION
  Report Type: Report from Study
  Country: JP (occurrence: JP)
  Receive Date: 20240314
  Receipt Date: 20240314
  Transmission Date: 20240410
  Serious: Yes (Other)
  Sender: FDA-Public Use
  Company Number: JP-RECORDATI RARE DISEASE INC.-2024001668

PATIENT

DRUGS (2)
  1. NEOPROFEN [Suspect]
     Active Substance: IBUPROFEN LYSINE
     Indication: Patent ductus arteriosus
     Dosage: 7 MG
     Route: 042
     Dates: start: 20190730, end: 20190730
  2. PHENOBARBITAL SODIUM [Concomitant]
     Active Substance: PHENOBARBITAL SODIUM
     Indication: Intraventricular haemorrhage
     Dosage: 250 MG FOR INJECTION
     Route: 042
     Dates: start: 20190724, end: 20190730

REACTIONS (3)
  - Pulmonary haemorrhage [Recovered/Resolved]
  - Bronchopulmonary dysplasia [Recovering/Resolving]
  - Anaemia [Recovering/Resolving]

NARRATIVE: CASE EVENT DATE: 20190731
